FAERS Safety Report 15663533 (Version 1)
Quarter: 2018Q4

REPORT INFORMATION
  Report Type: Spontaneous
  Country: PT (occurrence: PT)
  Receive Date: 20181128
  Receipt Date: 20181128
  Transmission Date: 20190205
  Serious: Yes (Life-Threatening, Hospitalization, Other)
  Sender: FDA-Public Use
  Company Number: PT-TEVA-2018-PT-977328

PATIENT
  Age: 45 Year
  Sex: Male
  Weight: 102 kg

DRUGS (5)
  1. EUCREAS [Suspect]
     Active Substance: METFORMIN HYDROCHLORIDE\VILDAGLIPTIN
     Indication: TYPE 2 DIABETES MELLITUS
     Dosage: 2 DOSAGE FORMS DAILY;
     Route: 048
  2. CRESTOR [Concomitant]
     Active Substance: ROSUVASTATIN CALCIUM
     Indication: TYPE 2 DIABETES MELLITUS
     Dosage: 5 MILLIGRAM DAILY;
     Route: 048
  3. METFORMIN [Suspect]
     Active Substance: METFORMIN HYDROCHLORIDE
     Indication: PRODUCT USED FOR UNKNOWN INDICATION
     Dosage: 3 GRAM DAILY;
     Route: 048
  4. RISIDON [Suspect]
     Active Substance: METFORMIN HYDROCHLORIDE
     Indication: TYPE 2 DIABETES MELLITUS
     Dosage: 1 GRAM DAILY;
     Route: 048
     Dates: end: 20181025
  5. DIAMICRON LM 60 MG [Concomitant]
     Indication: TYPE 2 DIABETES MELLITUS
     Dosage: 60 MILLIGRAM DAILY;
     Route: 065

REACTIONS (6)
  - Acute kidney injury [Recovered/Resolved]
  - Blood chloride increased [Recovered/Resolved]
  - Blood creatinine increased [Recovered/Resolved]
  - Lactic acidosis [Recovered/Resolved]
  - Blood sodium increased [Recovered/Resolved]
  - Blood urea increased [Recovered/Resolved]

NARRATIVE: CASE EVENT DATE: 20181023
